FAERS Safety Report 10660793 (Version 2)
Quarter: 2014Q4

REPORT INFORMATION
  Report Type: Spontaneous
  Country: FR (occurrence: FR)
  Receive Date: 20141217
  Receipt Date: 20141231
  Transmission Date: 20150529
  Serious: Yes (Other)
  Sender: FDA-Public Use
  Company Number: FR-ALLERGAN-1425796US

PATIENT
  Age: 96 Year
  Sex: Male

DRUGS (1)
  1. TROSPIUM CHLORIDE UNK [Suspect]
     Active Substance: TROSPIUM CHLORIDE
     Indication: HYPERTONIC BLADDER
     Dosage: 20 MG, BID
     Route: 048

REACTIONS (3)
  - Disorientation [Recovering/Resolving]
  - Confusional state [Recovered/Resolved]
  - Cognitive disorder [Recovering/Resolving]
